FAERS Safety Report 14335991 (Version 1)
Quarter: 2017Q4

REPORT INFORMATION
  Report Type: Spontaneous
  Country: FR (occurrence: FR)
  Receive Date: 20171229
  Receipt Date: 20171229
  Transmission Date: 20180321
  Serious: Yes (Hospitalization)
  Sender: FDA-Public Use
  Company Number: FR-ASTRAZENECA-2017SF31185

PATIENT
  Age: 69 Year
  Sex: Female

DRUGS (5)
  1. FORMOTEROL FUMARATE DIHYDRATE [Suspect]
     Active Substance: FORMOTEROL FUMARATE DIHYDRATE
     Indication: LUNG INFECTION
     Route: 055
     Dates: start: 20171019
  2. CIFLOX [Suspect]
     Active Substance: CIPROFLOXACIN
     Indication: LUNG INFECTION
     Route: 048
     Dates: start: 20171026
  3. AUGMENTIN [Suspect]
     Active Substance: AMOXICILLIN\CLAVULANATE POTASSIUM
     Indication: LUNG INFECTION
     Route: 048
     Dates: start: 20171019, end: 20171026
  4. AMBROXOL [Suspect]
     Active Substance: AMBROXOL
     Indication: LUNG INFECTION
     Route: 048
     Dates: start: 20171019
  5. PULMICORT TURBUHALER [Suspect]
     Active Substance: BUDESONIDE
     Indication: LUNG INFECTION
     Route: 055
     Dates: start: 20171019

REACTIONS (2)
  - Neutropenia [Recovered/Resolved]
  - Anaemia [Recovered/Resolved]

NARRATIVE: CASE EVENT DATE: 20171027
